FAERS Safety Report 13083402 (Version 2)
Quarter: 2018Q1

REPORT INFORMATION
  Report Type: Spontaneous
  Country: US (occurrence: US)
  Receive Date: 20170104
  Receipt Date: 20180111
  Transmission Date: 20180508
  Serious: Yes (Disabling, Other)
  Sender: FDA-Public Use
  Company Number: US-STRIDES ARCOLAB LIMITED-2016SP020804

PATIENT

DRUGS (5)
  1. PREDNISOLONE ACETATE. [Concomitant]
     Active Substance: PREDNISOLONE ACETATE
     Indication: PRODUCT USED FOR UNKNOWN INDICATION
     Dosage: UNKNOWN
     Route: 061
  2. VANCOMYCIN [Suspect]
     Active Substance: VANCOMYCIN
     Indication: ENDOPHTHALMITIS
  3. OFLOXACIN. [Concomitant]
     Active Substance: OFLOXACIN
     Indication: PRODUCT USED FOR UNKNOWN INDICATION
     Dosage: UNK, UNKNOWN
     Route: 061
  4. VANCOMYCIN [Suspect]
     Active Substance: VANCOMYCIN
     Indication: PROPHYLAXIS
     Dosage: UNK (INTRACAMERAL VANCOMYCIN IN THE RIGHT EYE AND LEFT EYE)
     Route: 031
  5. KETOROLAC [Concomitant]
     Active Substance: KETOROLAC\KETOROLAC TROMETHAMINE
     Indication: PRODUCT USED FOR UNKNOWN INDICATION
     Dosage: UNK, UNKNOWN
     Route: 061

REACTIONS (14)
  - Macular oedema [Unknown]
  - Keratic precipitates [Unknown]
  - Necrotising retinitis [Unknown]
  - Retinal ischaemia [Unknown]
  - Retinal artery occlusion [Unknown]
  - Retinal vein occlusion [Unknown]
  - Vitritis [Unknown]
  - Retinal vasculitis [Unknown]
  - Retinal exudates [Unknown]
  - Toxicity to various agents [Unknown]
  - Blindness [Recovered/Resolved]
  - Eye pain [Unknown]
  - Haemorrhagic vasculitis [Unknown]
  - Glaucoma [Unknown]
